FAERS Safety Report 25884283 (Version 1)
Quarter: 2025Q4

REPORT INFORMATION
  Report Type: Spontaneous
  Country: US (occurrence: None)
  Receive Date: 20251003
  Receipt Date: 20251003
  Transmission Date: 20260118
  Serious: Yes (Hospitalization)
  Sender: FDA-CTU
  Company Number: None

PATIENT
  Age: 68 Year
  Sex: Female

DRUGS (23)
  1. ADEMPAS [Suspect]
     Active Substance: RIOCIGUAT
     Indication: Pulmonary hypertension
     Dosage: 0.5MG TID ORAL
     Route: 048
     Dates: start: 20160405
  2. WARFARIN [Concomitant]
     Active Substance: WARFARIN
  3. FUROSEMIDE [Concomitant]
     Active Substance: FUROSEMIDE
  4. SPIRONOLACTONE [Concomitant]
     Active Substance: SPIRONOLACTONE
  5. SENNOSIDES [Concomitant]
     Active Substance: SENNOSIDES
  6. MIRALAX [Concomitant]
     Active Substance: POLYETHYLENE GLYCOL 3350
  7. LACTULOSE [Concomitant]
     Active Substance: LACTULOSE
  8. FERROUS SULFATE [Concomitant]
     Active Substance: FERROUS SULFATE
  9. BENZONATATE [Concomitant]
     Active Substance: BENZONATATE
  10. VITAMIN D3 [Concomitant]
     Active Substance: CHOLECALCIFEROL
  11. POTASSIUM CHLORIDE [Concomitant]
     Active Substance: POTASSIUM CHLORIDE
  12. ASPIRIN [Concomitant]
     Active Substance: ASPIRIN
  13. LOSARTAN [Concomitant]
     Active Substance: LOSARTAN
  14. FAMOTIDINE [Concomitant]
     Active Substance: FAMOTIDINE
  15. NARCAN [Concomitant]
     Active Substance: NALOXONE HYDROCHLORIDE
  16. COLACE [Concomitant]
     Active Substance: DOCUSATE SODIUM
  17. ASPIRIN [Suspect]
     Active Substance: ASPIRIN
  18. DUONEB [Concomitant]
     Active Substance: ALBUTEROL SULFATE\IPRATROPIUM BROMIDE
  19. EZETIMIBE [Concomitant]
     Active Substance: EZETIMIBE
  20. CALCITRIOL [Concomitant]
     Active Substance: CALCITRIOL
  21. VITAMIN E [Concomitant]
     Active Substance: .ALPHA.-TOCOPHEROL
  22. VITAMINS [Concomitant]
     Active Substance: VITAMINS
  23. ACETAMINOPHEN [Concomitant]
     Active Substance: ACETAMINOPHEN

REACTIONS (3)
  - Acute respiratory failure [None]
  - Left ventricular failure [None]
  - Condition aggravated [None]

NARRATIVE: CASE EVENT DATE: 20250823
